FAERS Safety Report 9786786 (Version 2)
Quarter: 2014Q1

REPORT INFORMATION
  Report Type: Spontaneous
  Country: US (occurrence: US)
  Receive Date: 20131227
  Receipt Date: 20140103
  Transmission Date: 20141002
  Serious: No
  Sender: FDA-Public Use
  Company Number: US-BAXTER-2013BAX051324

PATIENT
  Sex: Male

DRUGS (3)
  1. DIANEAL LOW CALCIUM [Suspect]
     Indication: RENAL FAILURE CHRONIC
     Route: 033
     Dates: start: 201302
  2. DIANEAL LOW CALCIUM [Suspect]
     Route: 033
     Dates: start: 201302
  3. DIANEAL LOW CALCIUM [Suspect]
     Route: 033
     Dates: start: 201302

REACTIONS (2)
  - Peritoneal effluent abnormal [Recovered/Resolved]
  - Scrotal oedema [Recovered/Resolved]
